FAERS Safety Report 4365418-4 (Version None)
Quarter: 2004Q2

REPORT INFORMATION
  Report Type: 
  Country: None (occurrence: None)
  Receive Date: 20040520
  Receipt Date: 20030911
  Transmission Date: 20050107
  Serious: No
  Sender: FDA-Public Use
  Company Number: K200301513

PATIENT

DRUGS (1)
  1. BICILLIN C-R 900/300 [Suspect]

REACTIONS (1)
  - MEDICATION ERROR [None]
